FAERS Safety Report 26161072 (Version 1)
Quarter: 2025Q4

REPORT INFORMATION
  Report Type: Spontaneous
  Country: US (occurrence: None)
  Receive Date: 20251216
  Receipt Date: 20251216
  Transmission Date: 20260118
  Serious: No
  Sender: ENDO
  Company Number: US-ENDO USA, INC.-2025-002080

PATIENT
  Sex: Male
  Weight: 79.365 kg

DRUGS (10)
  1. XIAFLEX [Suspect]
     Active Substance: COLLAGENASE CLOSTRIDIUM HISTOLYTICUM
     Indication: Peyronie^s disease
     Dosage: 0.58 MILLIGRAM, SINGLE (CYCLE 3, INJECTION 1,1X ON 2 DAYS, 1-3 DAYS APART EVERY 6 WEEKS)
     Dates: start: 20250917, end: 20250917
  2. XIAFLEX [Suspect]
     Active Substance: COLLAGENASE CLOSTRIDIUM HISTOLYTICUM
     Dosage: 0.58 MILLIGRAM, SINGLE (CYCLE 1, INJECTION 1, 1X ON 2 DAYS, 1-3 DAYS APART EVERY 6 WEEKS)
     Dates: start: 20250305, end: 20250305
  3. XIAFLEX [Suspect]
     Active Substance: COLLAGENASE CLOSTRIDIUM HISTOLYTICUM
     Dosage: 0.58 MILLIGRAM, SINGLE (CYCLE 1, INJECTION 2, 1X ON 2 DAYS, 1-3 DAYS APART EVERY 6 WEEKS)
     Dates: start: 20250320, end: 20250320
  4. XIAFLEX [Suspect]
     Active Substance: COLLAGENASE CLOSTRIDIUM HISTOLYTICUM
     Dosage: 0.58 MILLIGRAM, SINGLE (CYCLE 2, INJECTION 1, 1X ON 2 DAYS, 1-3 DAYS APART EVERY 6 WEEKS)
     Dates: start: 20250404, end: 20250404
  5. XIAFLEX [Suspect]
     Active Substance: COLLAGENASE CLOSTRIDIUM HISTOLYTICUM
     Dosage: 0.58 MILLIGRAM, SINGLE (CYCLE 2, INJECTION 2, 1X ON 2 DAYS, 1-3 DAYS APART EVERY 6 WEEKS)
     Dates: start: 20250415, end: 20250415
  6. AVEED [Concomitant]
     Active Substance: TESTOSTERONE UNDECANOATE
     Indication: Product used for unknown indication
     Dosage: UNK UNKNOWN, UNKNOWN
  7. ATORVASTATIN [Concomitant]
     Active Substance: ATORVASTATIN
     Indication: Blood cholesterol abnormal
     Dosage: UNK UNKNOWN, UNKNOWN
     Route: 065
  8. TAMSULOSIN [Concomitant]
     Active Substance: TAMSULOSIN
     Indication: Product used for unknown indication
     Dosage: UNK UNKNOWN, UNKNOWN
     Route: 065
  9. CITALOPRAM [Concomitant]
     Active Substance: CITALOPRAM
     Indication: Product used for unknown indication
     Dosage: UNK UNKNOWN, UNKNOWN
     Route: 065
  10. PRN MEDICATIONS [Concomitant]
     Indication: Product used for unknown indication
     Dosage: UNK UNKNOWN, UNKNOWN
     Route: 065

REACTIONS (3)
  - Injection site haematoma [Recovering/Resolving]
  - Ill-defined disorder [Unknown]
  - Inappropriate schedule of product administration [Not Recovered/Not Resolved]

NARRATIVE: CASE EVENT DATE: 20250101
